FAERS Safety Report 7125309-2 (Version None)
Quarter: 2010Q4

REPORT INFORMATION
  Report Type: 
  Country: None (occurrence: None)
  Receive Date: 20101115
  Receipt Date: 20101029
  Transmission Date: 20110411
  Serious: Yes (Other)
  Sender: FDA-Public Use
  Company Number: IPC201010-000287

PATIENT
  Age: 65 Year
  Sex: Male

DRUGS (2)
  1. HYDROCHLOROTHIAZIDE [Suspect]
  2. LEVOTHYROXINE SODIUM [Suspect]
     Dosage: LAST 10 YEARS

REACTIONS (8)
  - FATIGUE [None]
  - GAIT DISTURBANCE [None]
  - HYPOKALAEMIA [None]
  - MOVEMENT DISORDER [None]
  - MUSCULAR WEAKNESS [None]
  - NERVE CONDUCTION STUDIES ABNORMAL [None]
  - PAIN [None]
  - SENSATION OF HEAVINESS [None]
